FAERS Safety Report 10028742 (Version 1)
Quarter: 2014Q1

REPORT INFORMATION
  Report Type: Spontaneous
  Country: GB (occurrence: GB)
  Receive Date: 20140321
  Receipt Date: 20140321
  Transmission Date: 20141002
  Serious: Yes (Hospitalization)
  Sender: FDA-Public Use
  Company Number: GB-BAYER-2014-039760

PATIENT
  Age: 75 Year
  Sex: Female

DRUGS (2)
  1. CANESTEN SOLUTION [Suspect]
     Indication: OTITIS EXTERNA
     Dosage: 3 DROPS, TID
     Route: 001
     Dates: start: 20140224, end: 20140301
  2. LEVOTHYROXINE [Concomitant]

REACTIONS (8)
  - Viral rash [Recovering/Resolving]
  - Rash pruritic [Recovering/Resolving]
  - Local swelling [Recovering/Resolving]
  - Pain in extremity [Recovering/Resolving]
  - Headache [Recovering/Resolving]
  - Arthralgia [Recovering/Resolving]
  - Joint stiffness [Recovering/Resolving]
  - Erythema [Recovering/Resolving]
